FAERS Safety Report 9463940 (Version 1)
Quarter: 2013Q3

REPORT INFORMATION
  Report Type: Spontaneous
  Country: US (occurrence: US)
  Receive Date: 20130819
  Receipt Date: 20130819
  Transmission Date: 20140515
  Serious: Yes (Other)
  Sender: FDA-Public Use
  Company Number: US-COVIDIEN/TYCO HEALTHCARE/MALLINCKRODT-T201304118

PATIENT
  Age: 41 Year
  Sex: Male

DRUGS (2)
  1. GABLOFEN [Suspect]
     Indication: MUSCLE SPASTICITY
     Route: 037
  2. CLONIDINE [Suspect]
     Indication: PRODUCT USED FOR UNKNOWN INDICATION
     Dosage: UNK

REACTIONS (1)
  - Mental status changes [Unknown]
